FAERS Safety Report 4349783-X (Version None)
Quarter: 2004Q2

REPORT INFORMATION
  Report Type: 
  Country: None (occurrence: None)
  Receive Date: 20040428
  Receipt Date: 20040428
  Transmission Date: 20050107
  Serious: Yes (Other)
  Sender: FDA-Public Use
  Company Number: None

PATIENT
  Age: 58 Year
  Sex: Female
  Weight: 67 kg

DRUGS (1)
  1. IFOSFAMIDE AND MESNA [Suspect]
     Indication: SARCOMA UTERUS
     Dosage: 2 G/M2 IV Q 12 H 5 DOSES
     Route: 042
     Dates: start: 20040419, end: 20040421

REACTIONS (1)
  - BURNING SENSATION [None]
